FAERS Safety Report 4518367-2 (Version None)
Quarter: 2004Q4

REPORT INFORMATION
  Report Type: 
  Country: None (occurrence: None)
  Receive Date: 20041202
  Receipt Date: 20041118
  Transmission Date: 20050328
  Serious: Yes (Life-Threatening)
  Sender: FDA-Public Use
  Company Number: 04H-163-0281523-00

PATIENT
  Age: 64 Year
  Sex: Female

DRUGS (2)
  1. MORPHINE SULFATE INJ [Suspect]
     Indication: POST PROCEDURAL PAIN
     Dosage: 2 MG, SINGLE DOSE, INTRAVENOUS
     Route: 042
     Dates: start: 20041112, end: 20041112
  2. MORPHINE SULFATE INJ [Suspect]
     Indication: POST PROCEDURAL PAIN
     Dosage: 2 MG, SINGLE DOSE, INTRAVENOUS
     Route: 042
     Dates: start: 20041112, end: 20041113

REACTIONS (2)
  - COMA [None]
  - MEDICATION ERROR [None]
